FAERS Safety Report 8269583-8 (Version None)
Quarter: 2012Q2

REPORT INFORMATION
  Report Type: 
  Country: None (occurrence: None)
  Receive Date: 20120410
  Receipt Date: 20120405
  Transmission Date: 20120825
  Serious: Yes (Other)
  Sender: FDA-Public Use
  Company Number: US-AMGEN-USASP2012021979

PATIENT
  Age: 48 Year
  Sex: Male

DRUGS (1)
  1. PROLIA [Suspect]
     Indication: OSTEOPOROSIS
     Route: 065
     Dates: start: 20110901, end: 20120320

REACTIONS (1)
  - RENAL IMPAIRMENT [None]
